FAERS Safety Report 20325770 (Version 2)
Quarter: 2022Q1

REPORT INFORMATION
  Report Type: Spontaneous
  Country: US (occurrence: US)
  Receive Date: 20220112
  Receipt Date: 20220223
  Transmission Date: 20220423
  Serious: Yes (Life-Threatening)
  Sender: FDA-Public Use
  Company Number: US-CHIESI-2022CHF00042

PATIENT

DRUGS (1)
  1. CUROSURF [Suspect]
     Active Substance: PORACTANT ALFA
     Indication: Product used for unknown indication
     Dosage: UNK
     Route: 007
     Dates: start: 20211215

REACTIONS (4)
  - Aspiration [Unknown]
  - Unevaluable event [Recovering/Resolving]
  - Product administration error [Unknown]
  - Liquid product physical issue [Recovered/Resolved]

NARRATIVE: CASE EVENT DATE: 20211215
